FAERS Safety Report 8499064-8 (Version None)
Quarter: 2012Q3

REPORT INFORMATION
  Report Type: 
  Country: None (occurrence: None)
  Receive Date: 20120710
  Receipt Date: 20120702
  Transmission Date: 20120928
  Serious: Yes (Hospitalization, Other)
  Sender: FDA-Public Use
  Company Number: GB-MSD-1207GBR000041

PATIENT

DRUGS (6)
  1. JANUVIA [Suspect]
     Indication: DIABETES MELLITUS
     Dosage: 100 MG, UNK
     Route: 048
     Dates: start: 20120301, end: 20120618
  2. ACETAMINOPHEN [Concomitant]
  3. EZETIMIBE [Concomitant]
  4. METFORMIN HCL [Concomitant]
  5. GLICLAZIDE [Concomitant]
  6. SOLIFENACIN SUCCINATE [Concomitant]

REACTIONS (3)
  - PANCREATITIS ACUTE [None]
  - AMYLASE INCREASED [None]
  - ABDOMINAL PAIN [None]
